FAERS Safety Report 9394939 (Version 1)
Quarter: 2013Q3

REPORT INFORMATION
  Report Type: Spontaneous
  Country: US (occurrence: US)
  Receive Date: 20130711
  Receipt Date: 20130711
  Transmission Date: 20140515
  Serious: Yes (Other)
  Sender: FDA-Public Use
  Company Number: US-ALEXION PHARMACEUTICALS INC.-A201301590

PATIENT
  Sex: Female

DRUGS (1)
  1. SOLIRIS 300MG [Suspect]
     Indication: HAEMOLYTIC URAEMIC SYNDROME
     Dosage: 900 MG, QW
     Route: 042
     Dates: start: 201307

REACTIONS (4)
  - Renal failure [Not Recovered/Not Resolved]
  - Fluid retention [Unknown]
  - Blood creatinine increased [Recovering/Resolving]
  - Blood lactate dehydrogenase increased [Unknown]
